FAERS Safety Report 7568222-9 (Version None)
Quarter: 2011Q2

REPORT INFORMATION
  Report Type: 
  Country: None (occurrence: None)
  Receive Date: 20110623
  Receipt Date: 20110608
  Transmission Date: 20111010
  Serious: Yes (Hospitalization)
  Sender: FDA-Public Use
  Company Number: A0932485A

PATIENT
  Sex: Male

DRUGS (4)
  1. NICODERM [Suspect]
     Dates: start: 20100101
  2. ANTI-HYPERLIPIDEMIC [Concomitant]
  3. CLOPIDOGREL [Concomitant]
     Indication: ANTICOAGULANT THERAPY
  4. NICORETTE [Suspect]
     Route: 048
     Dates: start: 20100101

REACTIONS (6)
  - MOUTH ULCERATION [None]
  - APPLICATION SITE DISCHARGE [None]
  - APPLICATION SITE ERYTHEMA [None]
  - OVERDOSE [None]
  - DRUG INEFFECTIVE [None]
  - CEREBROVASCULAR ACCIDENT [None]
